FAERS Safety Report 19058767 (Version 3)
Quarter: 2023Q2

REPORT INFORMATION
  Report Type: Report from Study
  Country: DE (occurrence: DE)
  Receive Date: 20210325
  Receipt Date: 20230512
  Transmission Date: 20230722
  Serious: Yes (Death, Hospitalization, Other)
  Sender: FDA-Public Use
  Company Number: DE-SA-SAC20210208000271

PATIENT
  Age: 74 Year
  Sex: Male
  Weight: 98.5 kg

DRUGS (3)
  1. OXALIPLATIN [Suspect]
     Active Substance: OXALIPLATIN
     Indication: Colorectal cancer metastatic
     Dosage: 136 MG, QOW
     Route: 042
     Dates: start: 20210118, end: 20210118
  2. FLUOROURACIL [Suspect]
     Active Substance: FLUOROURACIL
     Indication: Colorectal cancer metastatic
     Dosage: 3840 MG, QOW
     Route: 042
     Dates: start: 20210118, end: 20210118
  3. LEVOLEUCOVORIN CALCIUM [Suspect]
     Active Substance: LEVOLEUCOVORIN CALCIUM
     Indication: Colorectal cancer metastatic
     Dosage: 700 MG, QOW
     Route: 042
     Dates: start: 20210118, end: 20210118

REACTIONS (3)
  - Cerebellar infarction [Fatal]
  - Pneumonitis [Unknown]
  - Dehydration [Not Recovered/Not Resolved]

NARRATIVE: CASE EVENT DATE: 20210201
